FAERS Safety Report 11452393 (Version 1)
Quarter: 2015Q3

REPORT INFORMATION
  Report Type: Spontaneous
  Country: US (occurrence: US)
  Receive Date: 20150831
  Receipt Date: 20150831
  Transmission Date: 20151125
  Serious: No
  Sender: FDA-Public Use
  Company Number: US-ELI_LILLY_AND_COMPANY-US200908000107

PATIENT
  Age: 43 Year
  Sex: Male

DRUGS (3)
  1. CYMBALTA [Suspect]
     Active Substance: DULOXETINE HYDROCHLORIDE
     Dosage: 20 MG, UNK
     Dates: start: 20090728
  2. FENTANYL. [Concomitant]
     Active Substance: FENTANYL
  3. CYMBALTA [Suspect]
     Active Substance: DULOXETINE HYDROCHLORIDE
     Indication: NERVE INJURY
     Dosage: 30 MG, DAILY (1/D)
     Dates: start: 2007, end: 200907

REACTIONS (4)
  - Incorrect dose administered [Unknown]
  - Intentional product misuse [Unknown]
  - Tremor [Not Recovered/Not Resolved]
  - Hyperhidrosis [Not Recovered/Not Resolved]

NARRATIVE: CASE EVENT DATE: 20090728
